FAERS Safety Report 4499746-9 (Version None)
Quarter: 2004Q4

REPORT INFORMATION
  Report Type: 
  Country: None (occurrence: None)
  Receive Date: 20041108
  Receipt Date: 20041021
  Transmission Date: 20050328
  Serious: Yes (Hospitalization)
  Sender: FDA-Public Use
  Company Number: FR-JNJFOC-20041006988

PATIENT
  Age: 49 Year
  Sex: Female

DRUGS (4)
  1. IMODIUM [Suspect]
     Dosage: 6 MG, IN 1 DAY, ORAL
     Route: 048
     Dates: start: 20040203, end: 20040204
  2. ADVIL [Suspect]
     Dosage: 3 DOSE(S), IN 1 DAY, ORAL
     Route: 048
     Dates: start: 20040203, end: 20040204
  3. DILTIAZEM [Suspect]
     Indication: HYPERTENSION
     Dosage: 1 DOSE(3), 1 IN 1 DAY, ORAL
     Route: 048
     Dates: start: 20040128, end: 20040204
  4. APPROVEL (IRBESARTAN) [Concomitant]

REACTIONS (12)
  - ACUTE GENERALISED EXANTHEMATOUS PUSTULOSIS [None]
  - ALANINE AMINOTRANSFERASE INCREASED [None]
  - ALPHA 2 GLOBULIN INCREASED [None]
  - ASTHENIA [None]
  - BLOOD GLUCOSE INCREASED [None]
  - BLOOD PRESSURE DIASTOLIC DECREASED [None]
  - CONDITION AGGRAVATED [None]
  - HEADACHE [None]
  - HEART RATE INCREASED [None]
  - HYPOALBUMINAEMIA [None]
  - PYREXIA [None]
  - WHITE BLOOD CELL COUNT INCREASED [None]
